FAERS Safety Report 6761523-3 (Version None)
Quarter: 2010Q2

REPORT INFORMATION
  Report Type: 
  Country: None (occurrence: None)
  Receive Date: 20100607
  Receipt Date: 20100525
  Transmission Date: 20101027
  Serious: Yes (Hospitalization)
  Sender: FDA-Public Use
  Company Number: 7006292

PATIENT
  Age: 6 Month
  Sex: Male

DRUGS (1)
  1. SAIZEN [Suspect]
     Indication: GROWTH HORMONE DEFICIENCY
     Dosage: 0 . 8 MG
     Dates: start: 20100507

REACTIONS (2)
  - HERNIA [None]
  - TESTICULAR SWELLING [None]
